FAERS Safety Report 12612568 (Version 1)
Quarter: 2016Q3

REPORT INFORMATION
  Report Type: Spontaneous
  Country: US (occurrence: US)
  Receive Date: 20160801
  Receipt Date: 20160801
  Transmission Date: 20161109
  Serious: No
  Sender: FDA-Public Use
  Company Number: US-TEIKOKU PHARMA USA-TPU2016-00498

PATIENT
  Sex: Male
  Weight: 85 kg

DRUGS (2)
  1. LIDODERM [Suspect]
     Active Substance: LIDOCAINE
     Indication: NECK PAIN
     Dosage: APPLY ONE PATCH ON NECK ON FOR 12 HOURS IN THE MORNING AND THEN OFF FOR 12 HOURS
     Route: 061
     Dates: start: 20160702, end: 20160710
  2. LIDODERM [Suspect]
     Active Substance: LIDOCAINE
     Indication: PAIN IN EXTREMITY
     Dosage: APPLY ONE PATCH ON NECK IN THE MORNING FOR 12 HOURS ON AND ONE PATCH ON THE LEFT FOREARM AT NIGHT FO
     Route: 061
     Dates: start: 20160710

REACTIONS (1)
  - Inappropriate schedule of drug administration [Not Recovered/Not Resolved]

NARRATIVE: CASE EVENT DATE: 20160710
